FAERS Safety Report 23182653 (Version 3)
Quarter: 2023Q4

REPORT INFORMATION
  Report Type: Report from Study
  Country: AR (occurrence: AR)
  Receive Date: 20231114
  Receipt Date: 20231130
  Transmission Date: 20240109
  Serious: Yes (Death, Hospitalization, Other)
  Sender: FDA-Public Use
  Company Number: AR-ALXN-202311SAM000541AR

PATIENT
  Age: 68 Year
  Sex: Female

DRUGS (1)
  1. SOLIRIS [Suspect]
     Active Substance: ECULIZUMAB
     Indication: Product used for unknown indication
     Dosage: 1200 MILLIGRAM, UNK
     Route: 065
     Dates: start: 2020

REACTIONS (2)
  - Intestinal obstruction [Fatal]
  - General physical health deterioration [Fatal]
